FAERS Safety Report 8109439-4 (Version None)
Quarter: 2012Q1

REPORT INFORMATION
  Report Type: 
  Country: None (occurrence: None)
  Receive Date: 20120202
  Receipt Date: 20120110
  Transmission Date: 20120608
  Serious: No
  Sender: FDA-Public Use
  Company Number: US-AMGEN-USASP2012001859

PATIENT
  Sex: Female
  Weight: 122.4 kg

DRUGS (5)
  1. MULTIVITAMIN                       /00097801/ [Concomitant]
     Dosage: UNK
  2. VITAMIN B COMPLEX CAP [Concomitant]
     Dosage: UNK
  3. ENBREL [Suspect]
     Indication: PRODUCT USED FOR UNKNOWN INDICATION
     Dosage: 50 MG, QWK
     Route: 058
  4. OSCAL 500+D [Concomitant]
  5. SECTRAL [Concomitant]
     Dosage: 200 MG, UNK

REACTIONS (1)
  - GASTROENTERITIS VIRAL [None]
